FAERS Safety Report 8233604-9 (Version None)
Quarter: 2012Q1

REPORT INFORMATION
  Report Type: 
  Country: None (occurrence: None)
  Receive Date: 20120326
  Receipt Date: 20120315
  Transmission Date: 20120608
  Serious: Yes (Hospitalization)
  Sender: FDA-Public Use
  Company Number: PHFR2012GB000880

PATIENT
  Sex: Male
  Weight: 66 kg

DRUGS (3)
  1. CLOZARIL [Suspect]
     Indication: SCHIZOPHRENIA
     Dosage: 175 MG, DAILY
     Route: 048
     Dates: start: 20000111, end: 20120101
  2. CLOZARIL [Suspect]
     Dosage: 175 MG, DAILY
     Route: 048
     Dates: start: 20120125
  3. CLOZARIL [Suspect]
     Dosage: 175 MG, DAILY
     Route: 048
     Dates: start: 20120130

REACTIONS (9)
  - TACHYCARDIA [None]
  - VOMITING [None]
  - CIRCULATORY COLLAPSE [None]
  - DEHYDRATION [None]
  - CONSTIPATION [None]
  - INFLUENZA [None]
  - ABDOMINAL PAIN UPPER [None]
  - SEDATION [None]
  - WEIGHT DECREASED [None]
